FAERS Safety Report 14403532 (Version 2)
Quarter: 2018Q1

REPORT INFORMATION
  Report Type: Report from Study
  Country: IL (occurrence: IL)
  Receive Date: 20180117
  Receipt Date: 20180206
  Transmission Date: 20180509
  Serious: Yes (Hospitalization)
  Sender: FDA-Public Use
  Company Number: IL-ACTELION-A-US2017-164094

PATIENT
  Age: 70 Year
  Sex: Female

DRUGS (11)
  1. AEROVENT [Concomitant]
  2. LOPRESSOR [Concomitant]
     Active Substance: METOPROLOL TARTRATE
  3. VENTAVIS [Suspect]
     Active Substance: ILOPROST
     Indication: PULMONARY HYPERTENSION
     Dosage: UNK
     Route: 055
     Dates: start: 20170423
  4. EUTHYROX [Concomitant]
     Active Substance: LEVOTHYROXINE SODIUM
  5. ANTINEOPLASTIC AGENTS [Concomitant]
     Active Substance: UNSPECIFIED INGREDIENT
     Dosage: UNK
  6. CARTIA XT [Concomitant]
     Active Substance: DILTIAZEM HYDROCHLORIDE
  7. SIRAN [Concomitant]
  8. FUSID [Concomitant]
     Active Substance: FUROSEMIDE
  9. DIOVAN [Concomitant]
     Active Substance: VALSARTAN
  10. FLIXOTIDE [Concomitant]
     Active Substance: FLUTICASONE PROPIONATE
  11. VASODIP [Concomitant]
     Active Substance: LERCANIDIPINE HYDROCHLORIDE

REACTIONS (3)
  - Parasitic gastroenteritis [Recovered/Resolved]
  - Diarrhoea [Recovered/Resolved]
  - Asthenia [Not Recovered/Not Resolved]

NARRATIVE: CASE EVENT DATE: 2017
